FAERS Safety Report 9414719 (Version 1)
Quarter: 2013Q3

REPORT INFORMATION
  Report Type: Spontaneous
  Country: IN (occurrence: IN)
  Receive Date: 20130723
  Receipt Date: 20130723
  Transmission Date: 20140515
  Serious: Yes (Death)
  Sender: FDA-Public Use
  Company Number: IN-BAXTER-2013BAX029189

PATIENT
  Sex: 0

DRUGS (1)
  1. HUMAN IMMUNOGLOBULIN IVIG, TRIPLE VIRALLY REDUCED (TVR) SOLUTION FOR I [Suspect]
     Indication: GUILLAIN-BARRE SYNDROME
     Route: 065

REACTIONS (1)
  - Death [Fatal]
